FAERS Safety Report 5643481-8 (Version None)
Quarter: 2008Q1

REPORT INFORMATION
  Report Type: 
  Country: None (occurrence: None)
  Receive Date: 20080228
  Receipt Date: 20080218
  Transmission Date: 20080703
  Serious: Yes (Disabling, Other)
  Sender: FDA-Public Use
  Company Number: GB-AVENTIS-200811573GDDC

PATIENT
  Age: 55 Year
  Sex: Female

DRUGS (4)
  1. METRONIDAZOLE HCL [Suspect]
     Route: 048
     Dates: start: 20080109, end: 20080112
  2. BETAHISTINE [Concomitant]
     Dates: start: 20070629
  3. LISINOPRIL [Concomitant]
     Dates: start: 20060208
  4. OXYBUTYNIN CHLORIDE [Concomitant]
     Dates: start: 20030910

REACTIONS (5)
  - JOINT SWELLING [None]
  - MUSCLE SPASMS [None]
  - NEUROPATHY PERIPHERAL [None]
  - OEDEMA PERIPHERAL [None]
  - PARAESTHESIA [None]
